FAERS Safety Report 23630402 (Version 1)
Quarter: 2024Q1

REPORT INFORMATION
  Report Type: Spontaneous
  Country: AU (occurrence: AU)
  Receive Date: 20240314
  Receipt Date: 20240314
  Transmission Date: 20240409
  Serious: Yes (Other)
  Sender: FDA-Public Use
  Company Number: AU-UCBSA-2024011881

PATIENT
  Age: 26 Year
  Sex: Male

DRUGS (3)
  1. KEPPRA [Suspect]
     Active Substance: LEVETIRACETAM
     Indication: Product used for unknown indication
     Dosage: 1 GRAM, 2X/DAY (BID)
     Dates: start: 2019
  2. KEPPRA [Suspect]
     Active Substance: LEVETIRACETAM
     Dosage: 1.5 GRAM, 2X/DAY (BID)
     Dates: start: 202402
  3. CARBAMAZEPINE [Concomitant]
     Active Substance: CARBAMAZEPINE
     Indication: Product used for unknown indication
     Dosage: 600 MILLIGRAM, 2X/DAY (BID)

REACTIONS (3)
  - Seizure [Unknown]
  - Wrong technique in product usage process [Unknown]
  - Product quality issue [Unknown]

NARRATIVE: CASE EVENT DATE: 20240201
